FAERS Safety Report 6346246-7 (Version None)
Quarter: 2009Q3

REPORT INFORMATION
  Report Type: 
  Country: None (occurrence: None)
  Receive Date: 20090909
  Receipt Date: 20090904
  Transmission Date: 20100115
  Serious: Yes (Life-Threatening, Hospitalization)
  Sender: FDA-Public Use
  Company Number: PHHY2009NO38051

PATIENT
  Sex: Female

DRUGS (3)
  1. CATAFLAM [Suspect]
     Indication: MIGRAINE
     Dosage: 50 MG, 1-3 TIMES PER DAY
  2. IMIGRAN [Suspect]
     Indication: MIGRAINE
     Dosage: 50 MG, QD
  3. NORDETTE-28 [Suspect]
     Indication: CONTRACEPTION
     Dosage: 1 DF, QD

REACTIONS (3)
  - ACUTE MYOCARDIAL INFARCTION [None]
  - BREAST PAIN [None]
  - CARDIAC ARREST [None]
